FAERS Safety Report 23081523 (Version 1)
Quarter: 2023Q4

REPORT INFORMATION
  Report Type: Spontaneous
  Country: FR (occurrence: FR)
  Receive Date: 20231019
  Receipt Date: 20231019
  Transmission Date: 20240110
  Serious: Yes (Hospitalization, Other)
  Sender: FDA-Public Use
  Company Number: FR-AFSSAPS-AVNT2023000834

PATIENT
  Age: 22 Year
  Sex: Female

DRUGS (3)
  1. TRAMADOL [Suspect]
     Active Substance: TRAMADOL\TRAMADOL HYDROCHLORIDE
     Indication: Product used for unknown indication
     Dosage: UNK(UNTILL 20CPS /J (100 MG UP TO 1 EOISODE))
     Route: 048
     Dates: start: 202303
  2. ALCOHOL [Suspect]
     Active Substance: ALCOHOL
     Indication: Product used for unknown indication
     Dosage: UNK (UNTILL 9 UI /J)
     Route: 065
  3. METHADONE [Suspect]
     Active Substance: METHADONE HYDROCHLORIDE
     Indication: Product used for unknown indication
     Dosage: UNK (20-40 MG CAPSULE)
     Route: 045

REACTIONS (3)
  - Seizure [Recovered/Resolved with Sequelae]
  - Drug dependence [Not Recovered/Not Resolved]
  - Toxicity to various agents [Recovered/Resolved]
